FAERS Safety Report 5854757-3 (Version None)
Quarter: 2008Q3

REPORT INFORMATION
  Report Type: 
  Country: None (occurrence: None)
  Receive Date: 20080822
  Receipt Date: 20080808
  Transmission Date: 20090109
  Serious: Yes (Other)
  Sender: FDA-Public Use
  Company Number: JP-PFIZER INC-2008068310

PATIENT
  Age: 13 Day

DRUGS (5)
  1. SILDENAFIL CITRATE [Suspect]
     Indication: PERSISTENT FOETAL CIRCULATION
     Route: 048
  2. EPOPROSTENOL SODIUM [Concomitant]
     Route: 042
  3. MEDIUM-CHAIN TRIGLYCERIDES [Concomitant]
  4. SANDOSTATIN [Concomitant]
  5. ALL OTHER THERAPEUTIC PRODUCTS [Concomitant]

REACTIONS (3)
  - MOOD ALTERED [None]
  - PLEURAL EFFUSION [None]
  - VOMITING [None]
